FAERS Safety Report 4882177-7 (Version None)
Quarter: 2006Q1

REPORT INFORMATION
  Report Type: 
  Country: None (occurrence: None)
  Receive Date: 20060117
  Receipt Date: 20051010
  Transmission Date: 20060701
  Serious: Yes (Hospitalization)
  Sender: FDA-Public Use
  Company Number: US-MERCK-0510USA06612

PATIENT
  Age: 67 Year
  Sex: Male
  Weight: 109 kg

DRUGS (2)
  1. VIOXX [Suspect]
     Indication: ARTHRALGIA
     Route: 048
     Dates: start: 20010101, end: 20030101
  2. ASPIRIN [Concomitant]
     Indication: PAIN
     Route: 065

REACTIONS (1)
  - MYOCARDIAL INFARCTION [None]
